FAERS Safety Report 8293491-X (Version None)
Quarter: 2012Q2

REPORT INFORMATION
  Report Type: 
  Country: None (occurrence: None)
  Receive Date: 20120417
  Receipt Date: 20120406
  Transmission Date: 20120825
  Serious: Yes (Life-Threatening)
  Sender: FDA-Public Use
  Company Number: CHPA2012US005799

PATIENT
  Age: 42 Year
  Sex: Female

DRUGS (5)
  1. CARAFATE [Concomitant]
     Dosage: UNK
     Dates: start: 20070101
  2. RANITIDINE HCL [Concomitant]
     Dosage: 150 MG, PRN
     Dates: start: 20070101
  3. PREVACID [Concomitant]
     Dosage: UNK
     Dates: start: 20070101
  4. EXCEDRIN (MIGRAINE) [Suspect]
     Indication: MIGRAINE
     Dosage: 1 DF, Q8H
     Route: 048
     Dates: start: 20070101, end: 20120101
  5. PROTONIX [Concomitant]
     Dosage: 40 MG, BID

REACTIONS (6)
  - INTESTINAL PERFORATION [None]
  - DYSPEPSIA [None]
  - FATIGUE [None]
  - TABLET PHYSICAL ISSUE [None]
  - BACK DISORDER [None]
  - UNDERDOSE [None]
